FAERS Safety Report 24466666 (Version 1)
Quarter: 2024Q4

REPORT INFORMATION
  Report Type: Report from Study
  Country: US (occurrence: US)
  Receive Date: 20241018
  Receipt Date: 20241018
  Transmission Date: 20250114
  Serious: No
  Sender: ROCHE
  Company Number: US-ROCHE-3548373

PATIENT
  Age: 76 Year
  Sex: Female
  Weight: 55.79 kg

DRUGS (9)
  1. XOLAIR [Suspect]
     Active Substance: OMALIZUMAB
     Indication: Urticaria
     Dosage: 1 SHOT IN EACH ARM?ON 04/JUN/2023, SHE RECEIVED MOST RECENT DOSE OF OMALIZUMAB.
     Route: 058
     Dates: start: 20230504
  2. XOLAIR [Suspect]
     Active Substance: OMALIZUMAB
  3. AMITRIPTYLINE [Suspect]
     Active Substance: AMITRIPTYLINE
     Indication: Product used for unknown indication
     Dosage: TAKES HALF HER DOSE NOW
     Route: 065
  4. PROLIA [Concomitant]
     Active Substance: DENOSUMAB
  5. AMITRIPTYLINE HYDROCHLORIDE [Concomitant]
     Active Substance: AMITRIPTYLINE HYDROCHLORIDE
     Dosage: 25 MG TABLET
  6. FLUTICASONE PROPIONATE [Concomitant]
     Active Substance: FLUTICASONE PROPIONATE
     Dosage: 50 MCG/ACTUATION NASAL SPRAY SUSPENSION
  7. METOPROLOL SUCCINATE [Concomitant]
     Active Substance: METOPROLOL SUCCINATE
     Dosage: 25 MG TABLET
  8. FLUOXETINE [Concomitant]
     Active Substance: FLUOXETINE HYDROCHLORIDE
     Dosage: 40 MG CAPSULE
  9. CYCLOBENZAPRINE [Concomitant]
     Active Substance: CYCLOBENZAPRINE
     Dosage: 10 MG TABLET

REACTIONS (2)
  - Off label use [Unknown]
  - No adverse event [Unknown]
